FAERS Safety Report 4411834-1 (Version None)
Quarter: 2004Q3

REPORT INFORMATION
  Report Type: 
  Country: None (occurrence: None)
  Receive Date: 20040728
  Receipt Date: 20040715
  Transmission Date: 20050211
  Serious: Yes (Death)
  Sender: FDA-Public Use
  Company Number: US-JNJFOC-20040601916

PATIENT
  Sex: Female

DRUGS (5)
  1. DURAGESIC [Suspect]
     Indication: CANCER PAIN
     Dosage: SEE IMAGE
     Route: 062
     Dates: start: 20040326, end: 20040328
  2. DURAGESIC [Suspect]
     Indication: CANCER PAIN
     Dosage: SEE IMAGE
     Route: 062
     Dates: start: 20040328, end: 20040616
  3. DURAGESIC [Suspect]
     Indication: CANCER PAIN
     Dosage: SEE IMAGE
     Route: 062
     Dates: start: 20031201
  4. DIAZEPAM [Concomitant]
  5. OXYCODONE (OXYCODONE) [Concomitant]

REACTIONS (10)
  - ANXIETY [None]
  - BACK PAIN [None]
  - CHEST WALL PAIN [None]
  - CRYING [None]
  - DRUG WITHDRAWAL SYNDROME [None]
  - EMOTIONAL DISTRESS [None]
  - MEDICATION ERROR [None]
  - MOBILITY DECREASED [None]
  - PAIN [None]
  - PHARMACEUTICAL PRODUCT COMPLAINT [None]
